FAERS Safety Report 11391767 (Version 1)
Quarter: 2015Q3

REPORT INFORMATION
  Report Type: Spontaneous
  Country: US (occurrence: None)
  Receive Date: 20150814
  Receipt Date: 20150814
  Transmission Date: 20151125
  Serious: Yes (Hospitalization, Other)
  Sender: FDA-Public Use
  Company Number: US-ZYDUS-008787

PATIENT
  Age: 77 Year
  Sex: Male

DRUGS (1)
  1. LEVETIRACETAM (LEVETIRACETAM) [Suspect]
     Active Substance: LEVETIRACETAM
     Indication: PROPHYLAXIS
     Route: 042

REACTIONS (8)
  - Consciousness fluctuating [None]
  - Aggression [None]
  - Patient restraint [None]
  - Lethargy [None]
  - Delirium [None]
  - Agitation [None]
  - Restlessness [None]
  - Disorientation [None]
